FAERS Safety Report 10385057 (Version 2)
Quarter: 2014Q3

REPORT INFORMATION
  Report Type: Spontaneous
  Country: JP (occurrence: JP)
  Receive Date: 20140814
  Receipt Date: 20140907
  Transmission Date: 20150326
  Serious: Yes (Other)
  Sender: FDA-Public Use
  Company Number: PHHY2013JP160582

PATIENT
  Sex: Female

DRUGS (3)
  1. GLIVEC [Suspect]
     Active Substance: IMATINIB MESYLATE
     Dosage: 600 MG, UNK
     Route: 065
     Dates: start: 20050218, end: 20050920
  2. GLIVEC [Suspect]
     Active Substance: IMATINIB MESYLATE
     Dosage: 400 MG, UNK
     Route: 065
  3. GLIVEC [Suspect]
     Active Substance: IMATINIB MESYLATE
     Indication: CHRONIC MYELOID LEUKAEMIA
     Dosage: 400 MG, UNK
     Route: 065
     Dates: start: 20040716

REACTIONS (10)
  - Hypoaesthesia [Unknown]
  - Arthralgia [Not Recovered/Not Resolved]
  - Thrombocytopenia [Recovering/Resolving]
  - Rash [Not Recovered/Not Resolved]
  - Myalgia [Not Recovered/Not Resolved]
  - Anaemia [Recovering/Resolving]
  - Oedema [Unknown]
  - Nausea [Unknown]
  - Peptic ulcer haemorrhage [Recovering/Resolving]
  - Anorexia nervosa [Unknown]

NARRATIVE: CASE EVENT DATE: 200407
